FAERS Safety Report 5201966-2 (Version None)
Quarter: 2007Q1

REPORT INFORMATION
  Report Type: 
  Country: None (occurrence: None)
  Receive Date: 20070104
  Receipt Date: 20070104
  Transmission Date: 20070707
  Serious: No
  Sender: FDA-Public Use
  Company Number: None

PATIENT
  Age: 48 Year
  Sex: Female
  Weight: 71.6683 kg

DRUGS (2)
  1. MUCINEX DM [Suspect]
     Indication: COUGH
     Dosage: 2 TABLETS   EVERY 12 HOURS  PO
     Route: 048
     Dates: start: 20070101, end: 20070102
  2. MUCINEX DM [Suspect]
     Indication: SINUSITIS
     Dosage: 2 TABLETS   EVERY 12 HOURS  PO
     Route: 048
     Dates: start: 20070101, end: 20070102

REACTIONS (2)
  - DIARRHOEA [None]
  - FAECAL INCONTINENCE [None]
